FAERS Safety Report 16746897 (Version 1)
Quarter: 2019Q3

REPORT INFORMATION
  Report Type: Spontaneous
  Country: US (occurrence: US)
  Receive Date: 20190827
  Receipt Date: 20190827
  Transmission Date: 20191005
  Serious: Yes (Hospitalization, Other)
  Sender: FDA-Public Use
  Company Number: US-009507513-1908USA005359

PATIENT
  Age: 56 Year
  Sex: Male
  Weight: 99 kg

DRUGS (2)
  1. CUBICIN [Suspect]
     Active Substance: DAPTOMYCIN
     Indication: OSTEOMYELITIS BACTERIAL
     Dosage: UNK, DAILY
     Route: 042
     Dates: start: 20190808, end: 20190819
  2. CUBICIN [Suspect]
     Active Substance: DAPTOMYCIN
     Indication: OSTEOMYELITIS

REACTIONS (3)
  - Rash [Recovering/Resolving]
  - Rhabdomyolysis [Unknown]
  - Product use in unapproved indication [Unknown]

NARRATIVE: CASE EVENT DATE: 20190808
